FAERS Safety Report 8507461-7 (Version None)
Quarter: 2012Q3

REPORT INFORMATION
  Report Type: 
  Country: None (occurrence: None)
  Receive Date: 20120712
  Receipt Date: 20120702
  Transmission Date: 20120928
  Serious: Yes (Hospitalization)
  Sender: FDA-Public Use
  Company Number: TR-TEVA-346426ISR

PATIENT
  Age: 59 Year
  Sex: Female

DRUGS (1)
  1. DICLOFENAC SODIUM [Suspect]
     Indication: BACK PAIN
     Route: 030

REACTIONS (6)
  - TONIC CLONIC MOVEMENTS [None]
  - BLOOD GLUCOSE INCREASED [None]
  - RESPIRATORY ARREST [None]
  - RETINOPATHY HYPERTENSIVE [None]
  - POSTERIOR REVERSIBLE ENCEPHALOPATHY SYNDROME [None]
  - BLOOD LACTATE DEHYDROGENASE INCREASED [None]
